FAERS Safety Report 11166020 (Version 1)
Quarter: 2015Q2

REPORT INFORMATION
  Report Type: Spontaneous
  Country: US (occurrence: US)
  Receive Date: 20150604
  Receipt Date: 20150604
  Transmission Date: 20150821
  Serious: No
  Sender: FDA-Public Use
  Company Number: US-ELI_LILLY_AND_COMPANY-US201405000488

PATIENT
  Age: 65 Year

DRUGS (6)
  1. CIALIS [Suspect]
     Active Substance: TADALAFIL
     Indication: ERECTILE DYSFUNCTION
     Dosage: 20 MG, PRN
     Route: 065
     Dates: start: 2011
  2. CIALIS [Interacting]
     Active Substance: TADALAFIL
     Dosage: 10 MG, PRN
     Route: 065
     Dates: start: 2011
  3. CIALIS [Interacting]
     Active Substance: TADALAFIL
     Dosage: 5 MG, PRN
     Route: 065
     Dates: start: 2011
  4. LISINOPRIL. [Interacting]
     Active Substance: LISINOPRIL
     Indication: HYPERTENSION
     Dosage: UNK, QD
     Route: 065
  5. ZANTAC [Concomitant]
     Active Substance: RANITIDINE HYDROCHLORIDE
  6. PRILOSEC [Concomitant]
     Active Substance: OMEPRAZOLE MAGNESIUM
     Dosage: UNK, PRN
     Route: 065

REACTIONS (7)
  - Nausea [Unknown]
  - Malaise [Unknown]
  - Hypertension [Unknown]
  - Inappropriate schedule of drug administration [Unknown]
  - Intentional product misuse [Unknown]
  - Drug interaction [Unknown]
  - Nausea [Unknown]

NARRATIVE: CASE EVENT DATE: 20140430
